FAERS Safety Report 10044583 (Version 2)
Quarter: 2014Q2

REPORT INFORMATION
  Report Type: Report from Study
  Country: HU (occurrence: HU)
  Receive Date: 20140328
  Receipt Date: 20140408
  Transmission Date: 20141212
  Serious: Yes (Hospitalization)
  Sender: FDA-Public Use
  Company Number: HU-ASTRAZENECA-2014SE19362

PATIENT
  Age: 59 Year
  Sex: Male

DRUGS (4)
  1. SYMBICORT FORTE TURBUHALER [Suspect]
     Indication: CHRONIC OBSTRUCTIVE PULMONARY DISEASE
     Dosage: 9/320 MCG/DOSE 1 INHALATION TWICE PER DAY
     Route: 055
     Dates: start: 20140123
  2. SYMBICORT FORTE TURBUHALER [Suspect]
     Indication: CHRONIC OBSTRUCTIVE PULMONARY DISEASE
     Dosage: 9/320 MCG/DOSE 3X4 INHALATIONS PER DAY
     Route: 055
     Dates: start: 20140123
  3. SYMBICORT FORTE TURBUHALER [Suspect]
     Indication: CHRONIC OBSTRUCTIVE PULMONARY DISEASE
     Dosage: 320/9 MCG/DOSE, UNKNOWN
     Route: 055
     Dates: start: 20140123, end: 20140317
  4. SYMBICORT FORTE TURBUHALER [Suspect]
     Indication: CHRONIC OBSTRUCTIVE PULMONARY DISEASE
     Dosage: 9/320 MCG/DOSE 3X4 INHALATIONS PER DAY, AS NEEDED
     Route: 055
     Dates: start: 20140123

REACTIONS (2)
  - Oedema peripheral [Unknown]
  - Off label use [Unknown]
